FAERS Safety Report 9464841 (Version 5)
Quarter: 2013Q4

REPORT INFORMATION
  Report Type: Spontaneous
  Country: US (occurrence: US)
  Receive Date: 20130819
  Receipt Date: 20131030
  Transmission Date: 20140711
  Serious: No
  Sender: FDA-Public Use
  Company Number: US-PFIZER INC-2013235745

PATIENT
  Age: 65 Year
  Sex: Female
  Weight: 48.07 kg

DRUGS (2)
  1. AMOXICILLIN [Suspect]
     Indication: TOOTH DISORDER
     Dosage: UNK
  2. FLUCONAZOLE [Suspect]
     Dosage: HALF TEASPOON, UNK
     Route: 048

REACTIONS (6)
  - Fungal infection [Unknown]
  - Oral discomfort [Unknown]
  - Throat irritation [Unknown]
  - Product taste abnormal [Unknown]
  - Product taste abnormal [Unknown]
  - Wrong technique in drug usage process [Unknown]
